FAERS Safety Report 7956560-7 (Version None)
Quarter: 2011Q4

REPORT INFORMATION
  Report Type: 
  Country: None (occurrence: None)
  Receive Date: 20111205
  Receipt Date: 20111125
  Transmission Date: 20120403
  Serious: Yes (Life-Threatening, Hospitalization, Other)
  Sender: FDA-Public Use
  Company Number: US-BAYER-2011-045863

PATIENT
  Age: 23 Year
  Sex: Female
  Weight: 111 kg

DRUGS (13)
  1. SINGULAIR [Concomitant]
     Indication: ASTHMA
     Dosage: UNK
     Dates: start: 20000101
  2. FEXOFENADINE [Concomitant]
     Indication: HYPERSENSITIVITY
     Dosage: UNK
     Dates: start: 20080501, end: 20091001
  3. PREVACID [Concomitant]
  4. SYMBICORT [Concomitant]
     Indication: ASTHMA
     Dosage: UNK
     Dates: start: 20090301, end: 20090401
  5. YASMIN [Suspect]
     Indication: CONTRACEPTION
     Dosage: UNK
     Dates: start: 20030601, end: 20040501
  6. DROSPIRENONE AND ETHINYL ESTRADIOL [Suspect]
     Indication: CONTRACEPTION
     Dosage: UNK
     Dates: start: 20080701, end: 20090801
  7. PERCOCET [Concomitant]
  8. COMBIVENT [Concomitant]
     Indication: DYSPNOEA
     Dosage: DAILY
     Dates: start: 20030101, end: 20090101
  9. XOPENEX [Concomitant]
  10. DEXAMETHASONE [Concomitant]
     Indication: HYPERADRENALISM
     Dosage: UNK
     Dates: start: 20060101
  11. FLEXERIL [Concomitant]
  12. YASMIN [Suspect]
     Dosage: UNK
     Dates: start: 20060201, end: 20060201
  13. COMBIVENT [Concomitant]
     Dosage: DAILY
     Dates: start: 20090601

REACTIONS (5)
  - GALLBLADDER INJURY [None]
  - PAIN [None]
  - ANHEDONIA [None]
  - CHOLECYSTITIS CHRONIC [None]
  - ANXIETY [None]
